APPROVED DRUG PRODUCT: SANDIMMUNE
Active Ingredient: CYCLOSPORINE
Strength: 50MG/ML
Dosage Form/Route: INJECTABLE;INJECTION
Application: N050573 | Product #001 | TE Code: AP
Applicant: NOVARTIS PHARMACEUTICALS CORP
Approved: Nov 14, 1983 | RLD: Yes | RS: Yes | Type: RX